FAERS Safety Report 7326453-7 (Version None)
Quarter: 2011Q1

REPORT INFORMATION
  Report Type: 
  Country: None (occurrence: None)
  Receive Date: 20110302
  Receipt Date: 20110224
  Transmission Date: 20110831
  Serious: Yes (Hospitalization)
  Sender: FDA-Public Use
  Company Number: US-ABBOTT-08P-163-0482831-00

PATIENT
  Sex: Male

DRUGS (1)
  1. LUPRON DEPOT [Suspect]
     Indication: PROSTATE CANCER
     Route: 030
     Dates: start: 20081001, end: 20081001

REACTIONS (10)
  - PITUITARY HAEMORRHAGE [None]
  - DISORIENTATION [None]
  - AMNESIA [None]
  - BLOOD SODIUM ABNORMAL [None]
  - VOMITING [None]
  - HALLUCINATION [None]
  - HEADACHE [None]
  - NAUSEA [None]
  - BLOOD CORTISOL ABNORMAL [None]
  - CONFUSIONAL STATE [None]
